FAERS Safety Report 7734102-9 (Version None)
Quarter: 2011Q3

REPORT INFORMATION
  Report Type: 
  Country: None (occurrence: None)
  Receive Date: 20110907
  Receipt Date: 20110902
  Transmission Date: 20111222
  Serious: Yes (Other)
  Sender: FDA-Public Use
  Company Number: DE-PFIZER INC-2011200401

PATIENT
  Age: 23 Year
  Sex: Female

DRUGS (3)
  1. MEDROXYPROGESTERONE ACETATE [Suspect]
     Route: 058
  2. MEDROXYPROGESTERONE ACETATE [Suspect]
     Indication: CONTRACEPTION
     Route: 058
  3. MEDROXYPROGESTERONE ACETATE [Suspect]
     Route: 058

REACTIONS (1)
  - INJECTION SITE ATROPHY [None]
